FAERS Safety Report 7346152-5 (Version None)
Quarter: 2011Q1

REPORT INFORMATION
  Report Type: 
  Country: None (occurrence: None)
  Receive Date: 20110301
  Receipt Date: 20110222
  Transmission Date: 20110831
  Serious: Yes (Other)
  Sender: FDA-Public Use
  Company Number: GER/GER/10/0016669

PATIENT
  Age: 70 Year
  Sex: Female

DRUGS (3)
  1. SERTRALINE HYDROCHLORIDE [Concomitant]
  2. OMEPRAZOLE [Concomitant]
  3. SIMVASTATIN [Suspect]
     Indication: HYPERCHOLESTEROLAEMIA

REACTIONS (3)
  - HYPERKERATOSIS [None]
  - CUTANEOUS LUPUS ERYTHEMATOSUS [None]
  - SKIN LESION [None]
